FAERS Safety Report 19726227 (Version 1)
Quarter: 2021Q3

REPORT INFORMATION
  Report Type: Spontaneous
  Country: IN (occurrence: IN)
  Receive Date: 20210819
  Receipt Date: 20210819
  Transmission Date: 20211014
  Serious: Yes (Hospitalization)
  Sender: FDA-Public Use
  Company Number: IN-GE HEALTHCARE LIFE SCIENCES-2021CSU004020

PATIENT

DRUGS (2)
  1. OMNIPAQUE [Suspect]
     Active Substance: IOHEXOL
     Indication: BARIUM SWALLOW
     Dosage: 10 ML, SINGLE
     Route: 048
  2. OMNIPAQUE [Suspect]
     Active Substance: IOHEXOL
     Indication: DYSPHAGIA

REACTIONS (2)
  - Accidental exposure to product [Recovered/Resolved]
  - Pneumonia aspiration [Recovered/Resolved]
